FAERS Safety Report 9470759 (Version 2)
Quarter: 2013Q3

REPORT INFORMATION
  Report Type: Spontaneous
  Country: US (occurrence: US)
  Receive Date: 20130822
  Receipt Date: 20130904
  Transmission Date: 20140515
  Serious: Yes (Other)
  Sender: FDA-Public Use
  Company Number: US-SANOFI-AVENTIS-2013SA079358

PATIENT
  Age: 70 Year
  Sex: Male
  Weight: 94 kg

DRUGS (26)
  1. ZALTRAP [Suspect]
     Dosage: EVERY 2 WEEKS
     Route: 065
     Dates: start: 20121001, end: 20130319
  2. ZALTRAP [Suspect]
     Dosage: EVERY 2 WEEKS
     Route: 065
  3. IRINOTECAN [Suspect]
     Route: 042
  4. ALL OTHER THERAPEUTIC PRODUCTS [Suspect]
     Route: 065
  5. XELODA [Concomitant]
  6. VITAMIN B6 [Concomitant]
  7. ECOTRIN [Concomitant]
  8. AVANDIA [Concomitant]
  9. VERAPAMIL [Concomitant]
  10. ALBUTEROL [Concomitant]
  11. LOVASTATIN [Concomitant]
  12. LISINOPRIL [Concomitant]
  13. OMEPRAZOLE [Concomitant]
  14. GEMFIBROZIL [Concomitant]
  15. MINOCYCLINE [Concomitant]
  16. LASIX [Concomitant]
  17. LEUCOVORIN [Concomitant]
     Route: 042
  18. 5-FU [Concomitant]
     Route: 042
  19. DECADRON [Concomitant]
     Route: 042
  20. ALOXI [Concomitant]
     Route: 042
  21. TYLENOL [Concomitant]
  22. DIPHENHYDRAMINE HYDROCHLORIDE [Concomitant]
  23. ATIVAN [Concomitant]
     Route: 048
  24. ATROPINE [Concomitant]
     Route: 042
  25. PEPCID [Concomitant]
  26. EMEND [Concomitant]
     Route: 042

REACTIONS (7)
  - Cholecystitis [Recovering/Resolving]
  - Malaise [Unknown]
  - Diarrhoea [Recovered/Resolved]
  - Dehydration [Recovered/Resolved]
  - Skin discolouration [Recovered/Resolved]
  - Lip discolouration [Recovered/Resolved]
  - Nail discolouration [Recovered/Resolved]
